FAERS Safety Report 17267449 (Version 1)
Quarter: 2019Q4

REPORT INFORMATION
  Report Type: Spontaneous
  Country: US (occurrence: US)
  Receive Date: 20191220
  Receipt Date: 20191220
  Transmission Date: 20200122
  Serious: Yes (Hospitalization)
  Sender: FDA-Public Use
  Company Number: None

PATIENT
  Age: 40 Year
  Sex: Female

DRUGS (2)
  1. COSENTYX [Suspect]
     Active Substance: SECUKINUMAB
     Indication: PSORIATIC ARTHROPATHY
     Dosage: ?          OTHER FREQUENCY:Q28D;?
     Route: 058
     Dates: start: 20190326
  2. SYNVISC-ONE [Concomitant]
     Active Substance: HYLAN G-F 20

REACTIONS (2)
  - Cardiac disorder [None]
  - Atrial fibrillation [None]

NARRATIVE: CASE EVENT DATE: 201911
